FAERS Safety Report 9905577 (Version 1)
Quarter: 2014Q1

REPORT INFORMATION
  Report Type: Spontaneous
  Country: AU (occurrence: None)
  Receive Date: 20140211
  Receipt Date: 20140211
  Transmission Date: 20141002
  Serious: Yes (Other)
  Sender: FDA-Public Use
  Company Number: 2014000038

PATIENT
  Age: 54 Year
  Sex: Female
  Weight: 103 kg

DRUGS (17)
  1. ACEON [Suspect]
     Indication: ESSENTIAL HYPERTENSION
     Route: 048
     Dates: start: 20120115
  2. FLUCLOXACILLIN SODIUM [Suspect]
     Indication: PRODUCT USED FOR UNKNOWN INDICATION
     Route: 042
  3. BENZYLPENICILLIN [Suspect]
     Indication: PRODUCT USED FOR UNKNOWN INDICATION
     Route: 042
     Dates: start: 20130703, end: 20130704
  4. ACAMPROSATE CALCIUM (ACAMPROSATE CALCIUM) [Concomitant]
  5. AMITRIPTYLINE HYDROCHLORIDE (AMITRIPTYLINE HYDROCHLORIDE) [Concomitant]
  6. ACETYLSALICYLIC ACID W/DIPYRIDAMOLE (ACETYLSALICYLIC ACID, DIPYRIDAMOLE) [Concomitant]
  7. ATORVASTATIN (ATORVASTATIN) [Concomitant]
  8. CEFAZOLIN SODIUM (CEFAZOLIN SODIUM) [Concomitant]
  9. DOCUSATE SODIUM W/SENNOSIDE A+B (DOCUSATES SODIUM W/SENNOSIDE A+B) [Concomitant]
  10. ENOXAPARIN (ENOXAPARIN) [Concomitant]
  11. METOPROLOL (METOPROLOL) [Concomitant]
  12. MULTIVITAMIN (VITAMINS NOS) [Concomitant]
  13. OXYCODONE HYDROCHLORIDE (OXYCODONE HYDROCHLORIDE) [Concomitant]
  14. PARACETAMOL (PARACETAMOL) [Concomitant]
  15. SPIRULINA (SPIRULINA) [Concomitant]
  16. THIAMINE (THIAMINE) [Concomitant]
  17. VANCOMYCIN HYDROCHLORIDE (VANCOMYCIN HYDROCHLORIDE) [Concomitant]

REACTIONS (4)
  - Staphylococcal bacteraemia [None]
  - Angioedema [None]
  - Open reduction of fracture [None]
  - Liver function test abnormal [None]
